FAERS Safety Report 7478877-5 (Version None)
Quarter: 2011Q2

REPORT INFORMATION
  Report Type: 
  Country: None (occurrence: None)
  Receive Date: 20110513
  Receipt Date: 20110509
  Transmission Date: 20111010
  Serious: Yes (Hospitalization)
  Sender: FDA-Public Use
  Company Number: US-ROCHE-776333

PATIENT
  Age: 68 Year
  Sex: Female
  Weight: 84.8 kg

DRUGS (3)
  1. DIOVAN HCT [Suspect]
     Route: 065
     Dates: end: 20090101
  2. TORADOL [Suspect]
     Route: 065
     Dates: end: 20090101
  3. CELEBREX [Suspect]
     Route: 065
     Dates: end: 20090101

REACTIONS (2)
  - RENAL FAILURE ACUTE [None]
  - MULTIPLE MYELOMA [None]
